FAERS Safety Report 7974964 (Version 4)
Quarter: 2012Q4

REPORT INFORMATION
  Report Type: 
  Country: JP (occurrence: JP)
  Receive Date: 20110606
  Receipt Date: 20121001
  Transmission Date: 20130627
  Serious: Yes (Hospitalization, Other)
  Sender: FDA-Public Use
  Company Number: JP-BAYER-2011-047771

PATIENT
  Age: 80 Year
  Sex: Male
  Weight: 70 kg

DRUGS (3)
  1. NEXAVAR [Suspect]
     Indication: HEPATIC NEOPLASM MALIGNANT
     Dosage: 400 mg, QD
     Route: 048
     Dates: start: 20110418, end: 20110601
  2. HIRUDOID [Concomitant]
     Indication: PROPHYLAXIS
     Dosage: UNK
     Route: 061
     Dates: start: 20110418, end: 20110601
  3. TAKEPRON [Concomitant]
     Dosage: Daily dose 15 mg
     Route: 048

REACTIONS (4)
  - Cerebral infarction [Recovering/Resolving]
  - Hepatic encephalopathy [Unknown]
  - Ammonia increased [Not Recovered/Not Resolved]
  - Hypertension [Recovering/Resolving]
